FAERS Safety Report 26166346 (Version 1)
Quarter: 2025Q4

REPORT INFORMATION
  Report Type: Report from Study
  Country: US (occurrence: US)
  Receive Date: 20251217
  Receipt Date: 20251217
  Transmission Date: 20260118
  Serious: Yes (Hospitalization)
  Sender: ABBVIE
  Company Number: US-ABBVIE-6585842

PATIENT
  Age: 60 Year
  Sex: Male

DRUGS (1)
  1. RINVOQ [Suspect]
     Active Substance: UPADACITINIB
     Indication: Dermatitis atopic
     Dosage: FORM STRENGTH: 15 MG
     Route: 048
     Dates: start: 20250220

REACTIONS (7)
  - Muscle spasms [Unknown]
  - Intervertebral disc protrusion [Recovered/Resolved]
  - Gastrooesophageal reflux disease [Recovered/Resolved]
  - Nerve injury [Not Recovered/Not Resolved]
  - Joint injury [Not Recovered/Not Resolved]
  - Walking aid user [Unknown]
  - Discomfort [Recovered/Resolved]

NARRATIVE: CASE EVENT DATE: 20250101
